APPROVED DRUG PRODUCT: MIRAPEX
Active Ingredient: PRAMIPEXOLE DIHYDROCHLORIDE
Strength: 1.5MG **Federal Register determination that product was not discontinued or withdrawn for safety or effectiveness reasons**
Dosage Form/Route: TABLET;ORAL
Application: N020667 | Product #005
Applicant: BOEHRINGER INGELHEIM
Approved: Jul 1, 1997 | RLD: Yes | RS: No | Type: DISCN